FAERS Safety Report 20803273 (Version 3)
Quarter: 2022Q2

REPORT INFORMATION
  Report Type: Spontaneous
  Country: US (occurrence: None)
  Receive Date: 20220509
  Receipt Date: 20220617
  Transmission Date: 20220721
  Serious: Yes (Death, Hospitalization, Other)
  Sender: FDA-Public Use
  Company Number: 2022A169816

PATIENT
  Age: 29567 Day
  Sex: Male

DRUGS (1)
  1. SYMBICORT [Suspect]
     Active Substance: BUDESONIDE\FORMOTEROL FUMARATE DIHYDRATE
     Indication: Asthma
     Dosage: 160 /4.5 MCG TWO RESPIRATORY INHALATIONS TWICE A DAY
     Route: 055
     Dates: start: 202204

REACTIONS (11)
  - Death [Fatal]
  - Asthma [Not Recovered/Not Resolved]
  - Small intestinal obstruction [Unknown]
  - COVID-19 [Recovered/Resolved with Sequelae]
  - Abdominal discomfort [Unknown]
  - Weight decreased [Unknown]
  - Poisoning [Unknown]
  - Body height decreased [Unknown]
  - Incorrect dose administered by device [Unknown]
  - Intentional device misuse [Unknown]
  - Device delivery system issue [Unknown]

NARRATIVE: CASE EVENT DATE: 20220508
